FAERS Safety Report 4397617-X (Version None)
Quarter: 2004Q3

REPORT INFORMATION
  Report Type: 
  Country: None (occurrence: None)
  Receive Date: 20040714
  Receipt Date: 20040630
  Transmission Date: 20050211
  Serious: Yes (Hospitalization)
  Sender: FDA-Public Use
  Company Number: A-US2003-03549

PATIENT
  Age: 57 Year
  Sex: Female
  Weight: 59 kg

DRUGS (22)
  1. TRACLEER [Suspect]
     Indication: PULMONARY HYPERTENSION
     Dosage: 62.5 MG, BID, ORAL
     Route: 048
     Dates: start: 20030926, end: 20031013
  2. TRACLEER [Suspect]
     Indication: PULMONARY HYPERTENSION
     Dosage: 62.5 MG, BID, ORAL
     Route: 048
     Dates: start: 20040607, end: 20040628
  3. PREDNISONE TAB [Concomitant]
  4. NEXIUM [Concomitant]
  5. DIGOXIN [Concomitant]
  6. K-DUR 10 [Concomitant]
  7. LASIX [Concomitant]
  8. COUMADIN [Concomitant]
  9. NITROGLYCERIN [Concomitant]
  10. MULTIVITAMIN [Concomitant]
  11. ALBUTEROL [Concomitant]
  12. NEURONTIN [Concomitant]
  13. DIOKASE [Concomitant]
  14. ULTRAM [Concomitant]
  15. VITAMIN C (ASCORBIC ACID) [Concomitant]
  16. VITAMIN B COMPLEX CAP [Concomitant]
  17. DUONEB [Concomitant]
  18. FLONASE [Concomitant]
  19. SENNA (SENNA) [Concomitant]
  20. MURELAX (OXAZEPAM) [Concomitant]
  21. CARDIZEM [Concomitant]
  22. VIOKASE (PANCRELIPASE) [Concomitant]

REACTIONS (8)
  - BLOOD PRESSURE DECREASED [None]
  - DYSPNOEA [None]
  - EYE SWELLING [None]
  - FATIGUE [None]
  - NAUSEA [None]
  - PAIN [None]
  - PANCREATITIS [None]
  - VOMITING [None]
